FAERS Safety Report 7797074-7 (Version None)
Quarter: 2011Q4

REPORT INFORMATION
  Report Type: 
  Country: None (occurrence: None)
  Receive Date: 20111003
  Receipt Date: 20110921
  Transmission Date: 20120403
  Serious: Yes (Hospitalization)
  Sender: FDA-Public Use
  Company Number: CIP11002318

PATIENT
  Age: 65 Year
  Sex: Female

DRUGS (2)
  1. ACTONEL [Suspect]
     Dosage: ORAL
     Route: 048
  2. CALCIUM +D (CALCIUM, ERGOCALCIFEROL) [Concomitant]

REACTIONS (4)
  - FALL [None]
  - HYPERPARATHYROIDISM [None]
  - HYPOCALCAEMIA [None]
  - ARRHYTHMIA [None]
